FAERS Safety Report 12109673 (Version 1)
Quarter: 2016Q1

REPORT INFORMATION
  Report Type: Spontaneous
  Country: US (occurrence: None)
  Receive Date: 20160222
  Receipt Date: 20160222
  Transmission Date: 20160526
  Serious: No
  Sender: FDA-Public Use
  Company Number: None

PATIENT
  Age: 50 Year
  Sex: Male

DRUGS (14)
  1. ACETAMINOPEHN [Concomitant]
     Active Substance: ACETAMINOPHEN
  2. AMPHOTERICIN B LIPOSOMAL [Suspect]
     Active Substance: AMPHOTERICIN B
     Indication: INFECTION
     Route: 042
     Dates: start: 20160120
  3. RIFAMPIN. [Concomitant]
     Active Substance: RIFAMPIN
  4. INSULIN ASPART [Concomitant]
     Active Substance: INSULIN ASPART
  5. ISONIAZID. [Concomitant]
     Active Substance: ISONIAZID
  6. ITRACONAZOLE. [Concomitant]
     Active Substance: ITRACONAZOLE
  7. METHYLPREDNISOLONE. [Concomitant]
     Active Substance: METHYLPREDNISOLONE
  8. PYRAZINAMIDE. [Suspect]
     Active Substance: PYRAZINAMIDE
  9. ETHAMBUTOL [Concomitant]
     Active Substance: ETHAMBUTOL HYDROCHLORIDE
  10. VANCOMYCIN [Suspect]
     Active Substance: VANCOMYCIN
  11. FAMOTIDINE. [Concomitant]
     Active Substance: FAMOTIDINE
  12. HEPARIN [Concomitant]
     Active Substance: HEPARIN SODIUM
  13. METRONIDAZOLE. [Concomitant]
     Active Substance: METRONIDAZOLE
  14. AZTREONAM. [Concomitant]
     Active Substance: AZTREONAM

REACTIONS (5)
  - Hypoxia [None]
  - Pyrexia [None]
  - Pulmonary toxicity [None]
  - Hypotension [None]
  - Respiratory distress [None]

NARRATIVE: CASE EVENT DATE: 20160120
